FAERS Safety Report 11952082 (Version 1)
Quarter: 2016Q1

REPORT INFORMATION
  Report Type: Spontaneous
  Country: US (occurrence: None)
  Receive Date: 20160122
  Receipt Date: 20160122
  Transmission Date: 20160526
  Serious: No
  Sender: FDA-Public Use
  Company Number: None

PATIENT
  Age: 71 Year
  Sex: Male

DRUGS (1)
  1. VELCADE [Suspect]
     Active Substance: BORTEZOMIB
     Indication: PLASMA CELL MYELOMA
     Dosage: TWICE WEEKLY X 2 W
     Dates: start: 20060301, end: 20060801

REACTIONS (1)
  - Cardiac output decreased [None]

NARRATIVE: CASE EVENT DATE: 20160120
